FAERS Safety Report 9505791 (Version 1)
Quarter: 2013Q1

REPORT INFORMATION
  Report Type: Spontaneous
  Country: DE (occurrence: None)
  Receive Date: 20130225
  Receipt Date: 20130225
  Transmission Date: 20140127
  Serious: Yes (Hospitalization)
  Sender: FDA-Public Use
  Company Number: 2012-630

PATIENT
  Sex: Female

DRUGS (3)
  1. PRIALT [Suspect]
     Indication: PAIN
     Dosage: ONCE AN HR
     Route: 037
     Dates: start: 201205, end: 20121109
  2. AMITRIPTYLINE HYDROCHLORIDE) [Concomitant]
  3. DUROGESIC (FENTANYL) [Concomitant]

REACTIONS (2)
  - Hallucination [None]
  - Restlessness [None]
